FAERS Safety Report 7291028-5 (Version None)
Quarter: 2011Q1

REPORT INFORMATION
  Report Type: 
  Country: None (occurrence: None)
  Receive Date: 20110214
  Receipt Date: 20110131
  Transmission Date: 20110831
  Serious: Yes (Other)
  Sender: FDA-Public Use
  Company Number: US-BAYER-2011-012338

PATIENT
  Sex: Female

DRUGS (1)
  1. BETASERON [Suspect]
     Indication: MULTIPLE SCLEROSIS RELAPSE
     Dosage: 8 MIU, QOD
     Route: 058
     Dates: start: 20060807

REACTIONS (7)
  - DEPRESSION [None]
  - DECREASED APPETITE [None]
  - PANIC ATTACK [None]
  - DYSPNOEA [None]
  - RASH ERYTHEMATOUS [None]
  - SCAB [None]
  - WEIGHT DECREASED [None]
